FAERS Safety Report 10648161 (Version 1)
Quarter: 2014Q4

REPORT INFORMATION
  Report Type: Spontaneous
  Country: US (occurrence: None)
  Receive Date: 20141211
  Receipt Date: 20141211
  Transmission Date: 20150529
  Serious: No
  Sender: FDA-Public Use
  Company Number: None

PATIENT
  Age: 49 Year
  Sex: Female
  Weight: 127.01 kg

DRUGS (2)
  1. GABAPENTIN. [Suspect]
     Active Substance: GABAPENTIN
     Indication: NERVE INJURY
     Dosage: X1 X 3 X^ SPER DAY
     Route: 048
     Dates: start: 20140723, end: 20141205
  2. GABAPENTIN. [Suspect]
     Active Substance: GABAPENTIN
     Indication: PAIN IN EXTREMITY
     Dosage: X1 X 3 X^ SPER DAY
     Route: 048
     Dates: start: 20140723, end: 20141205

REACTIONS (11)
  - Dry mouth [None]
  - Agitation [None]
  - Joint swelling [None]
  - Back pain [None]
  - Urinary tract infection [None]
  - Pain in extremity [None]
  - Peripheral swelling [None]
  - Depression [None]
  - Feeling hot [None]
  - Communication disorder [None]
  - Throat irritation [None]

NARRATIVE: CASE EVENT DATE: 20141205
